FAERS Safety Report 14480261 (Version 1)
Quarter: 2018Q1

REPORT INFORMATION
  Report Type: Spontaneous
  Country: GB (occurrence: GB)
  Receive Date: 20180202
  Receipt Date: 20180202
  Transmission Date: 20180509
  Serious: Yes (Other)
  Sender: FDA-Public Use
  Company Number: GB-OTSUKA-2018_001456

PATIENT
  Sex: Female

DRUGS (12)
  1. OLANZAPINE. [Suspect]
     Active Substance: OLANZAPINE
     Indication: DEPRESSION
     Dosage: UNK
     Route: 065
     Dates: start: 201311
  2. OLANZAPINE. [Suspect]
     Active Substance: OLANZAPINE
     Dosage: 2.5 MG, UNK
     Route: 065
     Dates: end: 201509
  3. OLANZAPINE. [Suspect]
     Active Substance: OLANZAPINE
     Dosage: UNK
     Route: 065
     Dates: start: 201610
  4. MIRTAZAPINE. [Suspect]
     Active Substance: MIRTAZAPINE
     Indication: DEPRESSION
     Dosage: 15 MG, QD
     Route: 065
     Dates: start: 201311
  5. OLANZAPINE. [Suspect]
     Active Substance: OLANZAPINE
     Dosage: 10 MG, QD (AT NIGHT)
     Route: 065
  6. SERTRALINE [Suspect]
     Active Substance: SERTRALINE HYDROCHLORIDE
     Indication: DEPRESSION
     Dosage: 150 MG, QD
     Route: 065
     Dates: start: 201509
  7. VENLAFAXINE [Suspect]
     Active Substance: VENLAFAXINE HYDROCHLORIDE
     Dosage: 150 MG, QD
     Route: 065
     Dates: start: 201412, end: 201509
  8. OLANZAPINE. [Suspect]
     Active Substance: OLANZAPINE
     Dosage: 5 MG, QD (AT NIGHT)
     Route: 065
  9. ARIPIPRAZOLE. [Suspect]
     Active Substance: ARIPIPRAZOLE
     Indication: DEPRESSION
     Dosage: 10 MG, QD
     Route: 065
     Dates: start: 201509, end: 201604
  10. MIRTAZAPINE. [Suspect]
     Active Substance: MIRTAZAPINE
     Dosage: 45 MG, QD (AT NIGHT)
     Route: 065
     Dates: start: 201604
  11. ARIPIPRAZOLE. [Suspect]
     Active Substance: ARIPIPRAZOLE
     Dosage: 15 MG, QD
     Route: 065
     Dates: start: 201604
  12. VENLAFAXINE [Suspect]
     Active Substance: VENLAFAXINE HYDROCHLORIDE
     Indication: DEPRESSION
     Dosage: 225 MG, QD
     Route: 065
     Dates: start: 201311, end: 201412

REACTIONS (2)
  - Bundle branch block right [Unknown]
  - Electrocardiogram QT prolonged [Recovered/Resolved]
